FAERS Safety Report 22171035 (Version 1)
Quarter: 2023Q2

REPORT INFORMATION
  Report Type: Spontaneous
  Country: US (occurrence: None)
  Receive Date: 20230403
  Receipt Date: 20230403
  Transmission Date: 20230722
  Serious: Yes (Other)
  Sender: FDA-Public Use
  Company Number: None

PATIENT
  Age: 34 Year
  Sex: Female
  Weight: 60.3 kg

DRUGS (1)
  1. NIVOLUMAB [Suspect]
     Active Substance: NIVOLUMAB
     Indication: Malignant melanoma
     Dosage: OTHER FREQUENCY : Q4 WEEKS;?
     Route: 042
     Dates: start: 20190502, end: 20200528

REACTIONS (1)
  - Multiple sclerosis [None]

NARRATIVE: CASE EVENT DATE: 20210806
